FAERS Safety Report 23158106 (Version 1)
Quarter: 2023Q4

REPORT INFORMATION
  Report Type: Report from Study
  Country: CA (occurrence: CA)
  Receive Date: 20231108
  Receipt Date: 20231108
  Transmission Date: 20240110
  Serious: Yes (Other)
  Sender: FDA-Public Use
  Company Number: CA-SAMSUNG BIOEPIS-SB-2023-29177

PATIENT
  Age: 20 Year
  Sex: Female

DRUGS (1)
  1. RENFLEXIS [Suspect]
     Active Substance: INFLIXIMAB-ABDA
     Indication: Colitis ulcerative
     Route: 042
     Dates: start: 20230918

REACTIONS (7)
  - Syncope [Recovered/Resolved]
  - Chest discomfort [Recovered/Resolved]
  - Nasopharyngitis [Unknown]
  - Infusion site extravasation [Unknown]
  - Vomiting [Unknown]
  - Infusion site bruising [Unknown]
  - Poor venous access [Unknown]

NARRATIVE: CASE EVENT DATE: 20230919
